FAERS Safety Report 7320719-2 (Version None)
Quarter: 2011Q1

REPORT INFORMATION
  Report Type: 
  Country: None (occurrence: None)
  Receive Date: 20110228
  Receipt Date: 20110222
  Transmission Date: 20110831
  Serious: Yes (Other)
  Sender: FDA-Public Use
  Company Number: US-PFIZER INC-2011038893

PATIENT
  Sex: Female
  Weight: 90.703 kg

DRUGS (6)
  1. CHANTIX [Suspect]
     Indication: SMOKING CESSATION THERAPY
     Dosage: 0.5 MG, 1X/DAY
     Route: 048
     Dates: start: 20110207
  2. GEODON [Interacting]
     Indication: BIPOLAR I DISORDER
     Dosage: 80 MG, 1X/DAY
     Route: 048
  3. URSODIOL [Interacting]
     Indication: LIVER DISORDER
     Dosage: 500 MG, 3X/DAY
     Route: 048
  4. CITALOPRAM HYDROBROMIDE [Interacting]
     Indication: DEPRESSION
     Dosage: 40 MG, 1X/DAY
     Route: 048
  5. BUSPIRONE [Interacting]
     Indication: ANXIETY
     Dosage: 30 MG, 1X/DAY
     Route: 048
  6. BENZTROPINE MESYLATE [Interacting]
     Dosage: 1 MG, 3X/DAY
     Route: 048

REACTIONS (2)
  - DEPRESSION [None]
  - DRUG INTERACTION [None]
